FAERS Safety Report 4979305-1 (Version None)
Quarter: 2006Q2

REPORT INFORMATION
  Report Type: 
  Country: None (occurrence: None)
  Receive Date: 20060421
  Receipt Date: 20051004
  Transmission Date: 20061013
  Serious: Yes (Hospitalization, Disabling)
  Sender: FDA-Public Use
  Company Number: US-MERCK-0510USA02422

PATIENT
  Age: 59 Year
  Sex: Male
  Weight: 100 kg

DRUGS (7)
  1. VIOXX [Suspect]
     Indication: ARTHRALGIA
     Route: 048
     Dates: start: 19990812
  2. FLOMAX (MORNIFLUMATE) [Concomitant]
     Route: 065
  3. ZOCOR [Concomitant]
     Route: 065
  4. CRESTOR [Concomitant]
     Route: 065
  5. ALLEGRA [Concomitant]
     Route: 065
  6. ZINC (UNSPECIFIED) [Concomitant]
     Route: 065
  7. HYDROCHLOROTHIAZIDE AND BISOPROLOL FUMARATE [Concomitant]
     Route: 065

REACTIONS (12)
  - ACUTE MYOCARDIAL INFARCTION [None]
  - ANKLE FRACTURE [None]
  - BACK DISORDER [None]
  - BACK PAIN [None]
  - BLOOD TRIGLYCERIDES INCREASED [None]
  - BRADYCARDIA [None]
  - CORONARY ARTERY OCCLUSION [None]
  - FALL [None]
  - HYPERLIPIDAEMIA [None]
  - HYPOTENSION [None]
  - LOSS OF CONSCIOUSNESS [None]
  - WRIST FRACTURE [None]
